FAERS Safety Report 9173206 (Version 1)
Quarter: 2013Q1

REPORT INFORMATION
  Report Type: Spontaneous
  Country: US (occurrence: US)
  Receive Date: 20130320
  Receipt Date: 20130320
  Transmission Date: 20140127
  Serious: Yes (Hospitalization, Other)
  Sender: FDA-Public Use
  Company Number: US-JNJFOC-20090803981

PATIENT
  Age: 53 Year
  Sex: Female

DRUGS (1)
  1. MOTRIN IB [Suspect]
     Indication: BACK PAIN
     Dosage: 400 MG, Q4H, PRN
     Route: 048
     Dates: start: 20020530, end: 20020605

REACTIONS (11)
  - Nausea [Recovered/Resolved]
  - Speech disorder [Recovered/Resolved]
  - Vomiting [Recovered/Resolved]
  - Dizziness [Recovered/Resolved]
  - Hyperhidrosis [Recovered/Resolved]
  - Dehydration [Recovered/Resolved]
  - Tremor [Recovered/Resolved]
  - Stupor [Recovered/Resolved]
  - Convulsion [Recovered/Resolved]
  - Cold sweat [None]
  - Communication disorder [None]
